FAERS Safety Report 6424298-3 (Version None)
Quarter: 2009Q4

REPORT INFORMATION
  Report Type: 
  Country: None (occurrence: None)
  Receive Date: 20091103
  Receipt Date: 20091023
  Transmission Date: 20100525
  Serious: Yes (Hospitalization)
  Sender: FDA-Public Use
  Company Number: ZA-RANBAXY-2009RR-28560

PATIENT
  Age: 28 Year
  Sex: Female

DRUGS (9)
  1. ENALAPRIL MALEATE [Suspect]
     Dosage: 10 MG, BID
  2. ENALAPRIL MALEATE [Suspect]
     Dosage: 20 MG, BID
  3. PREDNISONE [Concomitant]
     Dosage: 60 MG, UNK
  4. ATENOLOL [Concomitant]
     Dosage: 50 MG, UNK
  5. AMLODIPINE [Concomitant]
     Dosage: 10 MG, UNK
  6. FUROSEMIDE [Concomitant]
     Dosage: 40 MG, UNK
  7. SIMVASTATIN [Concomitant]
     Dosage: 10 MG, UNK
  8. CYCLOPHOSPHAMIDE [Concomitant]
     Route: 042
  9. CALCIUM [Concomitant]

REACTIONS (1)
  - ANGIOEDEMA [None]
